FAERS Safety Report 9525185 (Version 1)
Quarter: 2013Q1

REPORT INFORMATION
  Report Type: Spontaneous
  Country: US (occurrence: None)
  Receive Date: 20130305
  Receipt Date: 20130305
  Transmission Date: 20140127
  Serious: Yes (Other)
  Sender: FDA-Public Use
  Company Number: 163-21880-12030096

PATIENT
  Age: 82 Year
  Sex: Male

DRUGS (6)
  1. REVLIMID [Suspect]
     Indication: PLASMA CELL MYELOMA
     Dosage: 25 MG, DAILY FOR 21 DAYS, PO
     Route: 048
     Dates: start: 20120227
  2. DEXAMETHASONE (DEXAMETHASONE) [Concomitant]
  3. PRILOSEC [Concomitant]
  4. LOVENOX (HEPARIN-FRACTION, SODIUM SALT) [Concomitant]
  5. ALLOPURINOL [Concomitant]
  6. ZOMETA (ZOLEDRONIC ACID) [Concomitant]

REACTIONS (3)
  - Dysphagia [None]
  - Gait disturbance [None]
  - Bone lesion [None]
